FAERS Safety Report 18459423 (Version 2)
Quarter: 2020Q4

REPORT INFORMATION
  Report Type: Spontaneous
  Country: US (occurrence: US)
  Receive Date: 20201103
  Receipt Date: 20201125
  Transmission Date: 20210114
  Serious: No
  Sender: FDA-Public Use
  Company Number: US-PFIZER INC-2020424762

PATIENT
  Age: 73 Year
  Sex: Female

DRUGS (2)
  1. IBRANCE [Suspect]
     Active Substance: PALBOCICLIB
     Dosage: 125 MG, CYCLIC (125 MG TABLETS, 1 TAB QD (ONCE DAILY) X 21DAYS ON, 7 DAYS OFF)
     Dates: start: 20201028
  2. IBRANCE [Suspect]
     Active Substance: PALBOCICLIB
     Indication: BREAST CANCER FEMALE
     Dosage: 125 MG, CYCLIC (125 MG QD X 21 DAYS)
     Dates: start: 20190111

REACTIONS (3)
  - Diarrhoea [Not Recovered/Not Resolved]
  - Night sweats [Unknown]
  - Headache [Not Recovered/Not Resolved]
